FAERS Safety Report 12446397 (Version 1)
Quarter: 2016Q2

REPORT INFORMATION
  Report Type: Spontaneous
  Country: US (occurrence: None)
  Receive Date: 20160607
  Receipt Date: 20160607
  Transmission Date: 20160815
  Serious: No
  Sender: FDA-Public Use
  Company Number: None

PATIENT
  Age: 73 Year
  Sex: Female

DRUGS (8)
  1. VITAMIN D [Concomitant]
     Active Substance: CHOLECALCIFEROL
  2. ASTRAGALUS GUMMIFER [Concomitant]
     Active Substance: UNSPECIFIED INGREDIENT
  3. THEOPHYLINE [Concomitant]
     Active Substance: THEOPHYLLINE ANHYDROUS
  4. MULTI VIT [Concomitant]
  5. XALKORI [Suspect]
     Active Substance: CRIZOTINIB
     Indication: BRONCHIAL CARCINOMA
     Route: 048
     Dates: start: 201210
  6. TRAMADOL. [Concomitant]
     Active Substance: TRAMADOL
  7. MAG OXIDE [Concomitant]
     Active Substance: MAGNESIUM OXIDE
  8. CQ10 [Concomitant]
     Active Substance: UBIDECARENONE

REACTIONS (2)
  - Urinary tract infection [None]
  - Drug dose omission [None]

NARRATIVE: CASE EVENT DATE: 201606
